FAERS Safety Report 17834405 (Version 1)
Quarter: 2020Q2

REPORT INFORMATION
  Report Type: Report from Study
  Country: US (occurrence: US)
  Receive Date: 20200528
  Receipt Date: 20200528
  Transmission Date: 20200714
  Serious: Yes (Hospitalization, Other)
  Sender: FDA-Public Use
  Company Number: US-GLAXOSMITHKLINE-US2020040870

PATIENT
  Sex: Female

DRUGS (7)
  1. LAMICTAL [Suspect]
     Active Substance: LAMOTRIGINE
     Indication: SEIZURE PROPHYLAXIS
     Dosage: UNK
     Route: 065
  2. CITALOPRAM [Concomitant]
     Active Substance: CITALOPRAM HYDROBROMIDE
     Indication: DEPRESSION
     Dosage: UNK
     Route: 048
  3. BOTULINUM TOXIN TYPE A [Suspect]
     Active Substance: BOTULINUM TOXIN TYPE A
     Dosage: UNK, SINGLE
     Route: 065
     Dates: start: 20190613, end: 20190613
  4. BOTULINUM TOXIN TYPE A [Suspect]
     Active Substance: BOTULINUM TOXIN TYPE A
     Indication: MIGRAINE
     Dosage: UNK, SINGLE
     Route: 065
     Dates: start: 2012, end: 2012
  5. ABILIFY [Suspect]
     Active Substance: ARIPIPRAZOLE
     Indication: DEPRESSION
     Dosage: UNK
     Route: 048
  6. BOTULINUM TOXIN TYPE A [Suspect]
     Active Substance: BOTULINUM TOXIN TYPE A
     Dosage: UNK, SINGLE
     Route: 065
     Dates: start: 20190926, end: 20190926
  7. BOTULINUM TOXIN TYPE A [Suspect]
     Active Substance: BOTULINUM TOXIN TYPE A
     Dosage: UNK, SINGLE
     Route: 065
     Dates: start: 20191226, end: 20191226

REACTIONS (7)
  - Visual impairment [Recovering/Resolving]
  - Fall [Recovered/Resolved]
  - Hypertension [Recovered/Resolved]
  - Visual field tests abnormal [Recovering/Resolving]
  - Migraine [Unknown]
  - Headache [Recovered/Resolved]
  - Cerebrovascular accident [Recovered/Resolved with Sequelae]

NARRATIVE: CASE EVENT DATE: 202002
